FAERS Safety Report 14943343 (Version 16)
Quarter: 2020Q2

REPORT INFORMATION
  Report Type: Report from Study
  Country: US (occurrence: US)
  Receive Date: 20180528
  Receipt Date: 20200519
  Transmission Date: 20200713
  Serious: Yes (Hospitalization, Other)
  Sender: FDA-Public Use
  Company Number: PHHO2017US007758

PATIENT
  Age: 42 Year
  Sex: Female
  Weight: 74 kg

DRUGS (10)
  1. AUBAGIO [Concomitant]
     Active Substance: TERIFLUNOMIDE
     Indication: MULTIPLE SCLEROSIS
     Dosage: 14 MG
     Route: 048
     Dates: start: 20180522
  2. DUONEB [Concomitant]
     Active Substance: ALBUTEROL SULFATE\IPRATROPIUM BROMIDE
     Indication: PRODUCTIVE COUGH
     Dosage: UNK
     Route: 065
     Dates: start: 20190108
  3. TERIFLUNOMIDE. [Suspect]
     Active Substance: TERIFLUNOMIDE
     Indication: MULTIPLE SCLEROSIS
     Dosage: UNK
     Route: 065
     Dates: start: 20180507, end: 20180521
  4. TERIFLUNOMIDE. [Suspect]
     Active Substance: TERIFLUNOMIDE
     Dosage: UNK
     Route: 065
     Dates: start: 20180521, end: 20200130
  5. AUGMENTIN [Concomitant]
     Active Substance: AMOXICILLIN\CLAVULANATE POTASSIUM
     Indication: TOOTH INFECTION
  6. GILENYA [Suspect]
     Active Substance: FINGOLIMOD HYDROCHLORIDE
     Indication: MULTIPLE SCLEROSIS
     Dosage: 0.5 MG, QD
     Route: 048
     Dates: start: 20170320, end: 20180419
  7. CYCLOBENZAPRINE. [Suspect]
     Active Substance: CYCLOBENZAPRINE
     Indication: PAIN
     Dosage: 10 MG
     Route: 048
     Dates: start: 20170320
  8. ALBUTEROL. [Concomitant]
     Active Substance: ALBUTEROL
     Indication: DYSPNOEA
     Dosage: UNK
     Route: 065
     Dates: start: 20190108
  9. AUGMENTIN [Concomitant]
     Active Substance: AMOXICILLIN\CLAVULANATE POTASSIUM
     Indication: BRONCHITIS
     Route: 065
  10. PREDNISONE. [Concomitant]
     Active Substance: PREDNISONE
     Indication: BRONCHITIS
     Dosage: UNK
     Route: 065
     Dates: start: 20190108

REACTIONS (31)
  - Accidental overdose [Recovered/Resolved]
  - Uterine leiomyoma [Recovered/Resolved]
  - Osteochondrosis [Recovering/Resolving]
  - Constipation [Recovered/Resolved]
  - Osteoarthritis [Recovering/Resolving]
  - Tendonitis [Recovered/Resolved]
  - Melanocytic naevus [Not Recovered/Not Resolved]
  - Dysmenorrhoea [Recovering/Resolving]
  - Bronchitis [Unknown]
  - Pruritus [Recovered/Resolved]
  - Peripheral swelling [Not Recovered/Not Resolved]
  - Hypoaesthesia [Unknown]
  - Urinary hesitation [Unknown]
  - Joint swelling [Unknown]
  - Radiculopathy [Unknown]
  - White blood cell count decreased [Unknown]
  - Tooth infection [Unknown]
  - Headache [Recovered/Resolved]
  - Paraesthesia [Recovered/Resolved]
  - Dermatitis allergic [Not Recovered/Not Resolved]
  - Lymphopenia [Recovered/Resolved]
  - Alopecia [Unknown]
  - Pain in extremity [Recovered/Resolved]
  - Skin depigmentation [Recovered/Resolved]
  - Haemangioma of skin [Not Recovered/Not Resolved]
  - Sciatica [Unknown]
  - Paraesthesia [Unknown]
  - Depression [Recovered/Resolved]
  - Tendonitis [Recovered/Resolved]
  - Seborrhoeic keratosis [Recovered/Resolved]
  - Pain [Unknown]

NARRATIVE: CASE EVENT DATE: 20170227
